FAERS Safety Report 5517483-6 (Version None)
Quarter: 2007Q4

REPORT INFORMATION
  Report Type: 
  Country: None (occurrence: None)
  Receive Date: 20071114
  Receipt Date: 20071105
  Transmission Date: 20080405
  Serious: Yes (Hospitalization, Other)
  Sender: FDA-Public Use
  Company Number: US-PFIZER INC-2006133682

PATIENT
  Sex: Male
  Weight: 80.7 kg

DRUGS (9)
  1. CELEBREX [Suspect]
     Indication: PAIN MANAGEMENT
  2. VIOXX [Suspect]
     Indication: PAIN MANAGEMENT
  3. COREG [Concomitant]
  4. WELLBUTRIN [Concomitant]
  5. PLAVIX [Concomitant]
  6. ALTACE [Concomitant]
  7. INSULIN [Concomitant]
  8. ACTOS [Concomitant]
  9. ACETYLSALICYLIC ACID SRT [Concomitant]

REACTIONS (4)
  - CARDIOVASCULAR DISORDER [None]
  - CORONARY ARTERY DISEASE [None]
  - MYOCARDIAL INFARCTION [None]
  - VOMITING [None]
